FAERS Safety Report 10376357 (Version 2)
Quarter: 2014Q3

REPORT INFORMATION
  Report Type: Spontaneous
  Country: FR (occurrence: FR)
  Receive Date: 20140811
  Receipt Date: 20140827
  Transmission Date: 20150326
  Serious: Yes (Death)
  Sender: FDA-Public Use
  Company Number: FR-PFIZER INC-2014218360

PATIENT
  Age: 48 Year
  Sex: Female

DRUGS (7)
  1. AMIKACIN MYLAN [Suspect]
     Active Substance: AMIKACIN
     Indication: HYPERTHERMIA
     Dosage: 1 G, DAILY
     Route: 042
     Dates: start: 20140715, end: 20140716
  2. ZYVOXID [Suspect]
     Active Substance: LINEZOLID
     Indication: FURUNCLE
     Dosage: UNK
     Route: 042
     Dates: start: 20140719, end: 20140722
  3. ZYVOXID [Suspect]
     Active Substance: LINEZOLID
     Indication: FURUNCLE
     Dosage: 600 MG, 2X/DAY
     Route: 048
     Dates: start: 20140711, end: 201407
  4. AUGMENTIN [Suspect]
     Active Substance: AMOXICILLIN\CLAVULANATE POTASSIUM
     Indication: FURUNCLE
     Dosage: UNK
     Dates: start: 20140711, end: 20140715
  5. CYTARABINE EBEWE [Suspect]
     Active Substance: CYTARABINE
     Indication: STEM CELL TRANSPLANT
     Dosage: 1410 MG, DAILY
     Route: 042
     Dates: start: 20140717, end: 20140720
  6. PIPERACILLIN/TAZOBACTAM PANPHARMA [Suspect]
     Active Substance: PIPERACILLIN SODIUM\TAZOBACTAM SODIUM
     Indication: HYPERTHERMIA
     Dosage: 4 G, 3X/DAY
     Route: 042
     Dates: start: 20140715, end: 20140718
  7. EVOLTRA [Suspect]
     Active Substance: CLOFARABINE
     Indication: STEM CELL TRANSPLANT
     Dosage: 42.3 MG, UNK
     Route: 042
     Dates: start: 20140717, end: 20140720

REACTIONS (1)
  - Toxic epidermal necrolysis [Fatal]

NARRATIVE: CASE EVENT DATE: 20140718
